FAERS Safety Report 9087793 (Version 1)
Quarter: 2013Q1

REPORT INFORMATION
  Report Type: Report from Study
  Country: US (occurrence: US)
  Receive Date: 20130201
  Receipt Date: 20130201
  Transmission Date: 20140127
  Serious: No
  Sender: FDA-Public Use
  Company Number: US-ABBOTT-12P-163-1021345-00

PATIENT
  Age: 77 Year
  Sex: Female

DRUGS (10)
  1. HUMIRA [Suspect]
     Indication: COLITIS ULCERATIVE
     Dates: start: 20120811
  2. HUMIRA [Suspect]
     Dosage: WEEKLY
  3. DIOVAN [Concomitant]
     Indication: BLOOD PRESSURE
     Dosage: 120 MG DAILY
     Route: 048
  4. CRESTOR [Concomitant]
     Indication: BLOOD CHOLESTEROL
     Dosage: 20 MG DAILY
     Route: 048
  5. LEXAPRO [Concomitant]
     Indication: ANXIETY
     Dosage: 20 MG DAILY
     Route: 048
  6. AMBIEN [Concomitant]
     Indication: INSOMNIA
     Route: 048
  7. UNKNOWN EYE VITAMINS [Concomitant]
     Indication: MACULAR DEGENERATION
     Dosage: DAILY
     Route: 048
  8. OPTIVE [Concomitant]
     Indication: DRY EYE
     Dosage: EYE DROPS, EACH EYE
     Route: 047
  9. ASACOL [Concomitant]
     Indication: PRODUCT USED FOR UNKNOWN INDICATION
  10. ICE [Concomitant]
     Indication: PRODUCT USED FOR UNKNOWN INDICATION

REACTIONS (2)
  - Injection site pain [Not Recovered/Not Resolved]
  - Injection site reaction [Not Recovered/Not Resolved]
